FAERS Safety Report 12536572 (Version 1)
Quarter: 2016Q3

REPORT INFORMATION
  Report Type: Spontaneous
  Country: US (occurrence: US)
  Receive Date: 20160707
  Receipt Date: 20160707
  Transmission Date: 20161109
  Serious: No
  Sender: FDA-Public Use
  Company Number: US-PFIZER INC-2016332735

PATIENT
  Sex: Female

DRUGS (4)
  1. IBUPROFEN. [Suspect]
     Active Substance: IBUPROFEN
     Dosage: UNK
  2. ADVIL [Suspect]
     Active Substance: IBUPROFEN
     Dosage: UNK
  3. CELEBREX [Suspect]
     Active Substance: CELECOXIB
     Dosage: UNK
  4. MOBIC [Suspect]
     Active Substance: MELOXICAM
     Dosage: UNK

REACTIONS (1)
  - Abdominal pain upper [Unknown]
